FAERS Safety Report 5830238-8 (Version None)
Quarter: 2008Q3

REPORT INFORMATION
  Report Type: 
  Country: None (occurrence: None)
  Receive Date: 20080801
  Receipt Date: 20080721
  Transmission Date: 20090109
  Serious: Yes (Hospitalization)
  Sender: FDA-Public Use
  Company Number: B0530027A

PATIENT
  Age: 63 Year
  Sex: Female

DRUGS (20)
  1. SERETIDE [Suspect]
     Dosage: 2PUFF PER DAY
     Route: 055
     Dates: start: 20080227
  2. FLIXONASE [Suspect]
     Dosage: 2SPR PER DAY
     Route: 045
     Dates: start: 20080227
  3. CORTANCYL [Suspect]
     Indication: RHEUMATOID ARTHRITIS
     Route: 048
  4. HYDROCORTISONE [Suspect]
     Indication: RHEUMATOID ARTHRITIS
     Route: 048
  5. FOSAVANCE [Suspect]
     Indication: OSTEOPOROSIS POSTMENOPAUSAL
     Route: 048
     Dates: end: 20071201
  6. LYRICA [Concomitant]
     Dosage: 75MG THREE TIMES PER DAY
     Route: 048
  7. PLAVIX [Concomitant]
     Route: 048
     Dates: end: 20080418
  8. VERAPAMIL [Concomitant]
     Route: 048
  9. FUROSEMIDE [Concomitant]
     Route: 048
  10. TAREG [Concomitant]
     Route: 048
  11. STILNOX [Concomitant]
     Indication: INSOMNIA
     Route: 048
  12. VALSARTAN [Concomitant]
     Route: 048
     Dates: end: 20080101
  13. PROTELOS [Concomitant]
     Indication: OSTEOPOROSIS POSTMENOPAUSAL
     Route: 048
     Dates: start: 20080101
  14. NEXIUM [Concomitant]
     Dosage: 40MG PER DAY
     Route: 048
  15. PROPOFAN [Concomitant]
     Indication: PAIN
     Route: 048
  16. SPIRIVA [Concomitant]
     Dosage: 1PUFF PER DAY
     Route: 055
     Dates: start: 20080101
  17. BRONCHODUAL [Concomitant]
     Dosage: 3PUFF PER DAY
     Route: 055
     Dates: start: 20080101
  18. SOLMUCOL [Concomitant]
     Indication: BRONCHIAL OBSTRUCTION
     Dosage: 600MG PER DAY
     Route: 048
  19. VOLTAREN [Concomitant]
     Route: 061
     Dates: start: 20080101
  20. TOPLEXIL [Concomitant]
     Route: 048
     Dates: start: 20080227

REACTIONS (2)
  - ENDOCARDITIS [None]
  - OSTEONECROSIS [None]
